FAERS Safety Report 17119387 (Version 1)
Quarter: 2019Q4

REPORT INFORMATION
  Report Type: Spontaneous
  Country: FR (occurrence: FR)
  Receive Date: 20191206
  Receipt Date: 20191206
  Transmission Date: 20200122
  Serious: Yes (Other)
  Sender: FDA-Public Use
  Company Number: FR-PFIZER INC-2019521786

PATIENT
  Age: 66 Year
  Sex: Male

DRUGS (1)
  1. SUTENT [Suspect]
     Active Substance: SUNITINIB MALATE
     Indication: RENAL CANCER METASTATIC
     Dosage: 50 MG, CYCLIC, 4 WEEKS ON /2 WEEKS OFF
     Route: 048
     Dates: start: 20150123

REACTIONS (20)
  - Haemorrhoids [Unknown]
  - Musculoskeletal pain [Unknown]
  - Mucosal inflammation [Unknown]
  - Anorectal disorder [Unknown]
  - Vomiting [Unknown]
  - Dyslipidaemia [Unknown]
  - Gout [Unknown]
  - Diarrhoea [Unknown]
  - Decreased appetite [Unknown]
  - Nausea [Unknown]
  - Anaemia [Unknown]
  - Abdominal pain upper [Unknown]
  - Dyspnoea exertional [Unknown]
  - Anal abscess [Unknown]
  - Asthenia [Unknown]
  - Bladder dilatation [Unknown]
  - Weight decreased [Unknown]
  - Epistaxis [Unknown]
  - Acute kidney injury [Unknown]
  - Anal fistula [Unknown]

NARRATIVE: CASE EVENT DATE: 20150313
